FAERS Safety Report 10022077 (Version 2)
Quarter: 2014Q1

REPORT INFORMATION
  Report Type: Spontaneous
  Country: JP (occurrence: JP)
  Receive Date: 20140319
  Receipt Date: 20140325
  Transmission Date: 20141002
  Serious: Yes (Hospitalization, Other)
  Sender: FDA-Public Use
  Company Number: JP-UCBSA-114588

PATIENT
  Sex: Female

DRUGS (10)
  1. E KEPPRA [Suspect]
     Indication: EPILEPSY
     Route: 048
     Dates: start: 201210, end: 201210
  2. E KEPPRA [Suspect]
     Indication: EPILEPSY
     Route: 048
     Dates: start: 201210
  3. CARBAMAZEPINE [Suspect]
     Indication: EPILEPSY
     Route: 048
     Dates: start: 2005, end: 201210
  4. SODIUM VALPROATE [Concomitant]
     Route: 048
     Dates: start: 2005
  5. SODIUM VALPROATE [Concomitant]
     Route: 048
     Dates: start: 201210
  6. CARNITINE CHLORIDE [Concomitant]
     Indication: CARNITINE DEFICIENCY
     Route: 048
     Dates: start: 201210
  7. PROCATEROL HYDROCHLORIDE HYDRATE [Concomitant]
     Route: 048
  8. CILOSTAZOL [Concomitant]
     Route: 048
  9. ATROPINE [Concomitant]
     Route: 042
  10. ISOPRENALINE [Concomitant]
     Route: 042

REACTIONS (2)
  - Sinus arrest [Recovered/Resolved]
  - Bradycardia [Recovered/Resolved]
